FAERS Safety Report 6496299-0 (Version None)
Quarter: 2009Q4

REPORT INFORMATION
  Report Type: 
  Country: None (occurrence: None)
  Receive Date: 20091214
  Receipt Date: 20091201
  Transmission Date: 20100525
  Serious: Yes (Other)
  Sender: FDA-Public Use
  Company Number: DE-CVT-090794

PATIENT

DRUGS (25)
  1. RANEXA [Suspect]
     Indication: ANGINA PECTORIS
     Dosage: 750 MG, QD
     Dates: start: 20090703, end: 20090709
  2. CYMBALTA [Suspect]
     Indication: DEPRESSION
     Dosage: 60 MG, QD
  3. ALLOPURINOL [Concomitant]
  4. ASPIRIN [Concomitant]
  5. CALCIUM /00751501/ [Concomitant]
  6. CLOPIDOGREL                        /01220701/ [Concomitant]
  7. IRON [Concomitant]
  8. ESCITALOPRAM [Concomitant]
  9. FENTANYL /00174601/ [Concomitant]
  10. ISOSORBIDE DINITRATE [Concomitant]
  11. LEVOTHYROXINE /00068001/ [Concomitant]
  12. LORAZEPAM [Concomitant]
  13. MACROGOL [Concomitant]
  14. METOPROLOL /00376901/ [Concomitant]
  15. MOLSIDOMIN [Concomitant]
  16. MORPHINE HYDROCHLORIDE [Concomitant]
  17. SODIUM PICOSULFATE [Concomitant]
  18. OXYCODONE [Concomitant]
  19. PANTOPRAZOLE [Concomitant]
  20. PERAZINE                           /00162501/ [Concomitant]
  21. RAMIPRIL                           /00885601/ [Concomitant]
  22. MORPHINE SULFATE [Concomitant]
     Indication: ABDOMINAL PAIN
     Dosage: 60 MG, QD
  23. STANGYL [Concomitant]
  24. OXYCODONE HCL [Concomitant]
     Indication: PAIN
  25. SIMVASTATIN [Concomitant]

REACTIONS (6)
  - HYPERHIDROSIS [None]
  - HYPERTENSION [None]
  - NAUSEA [None]
  - RESTLESSNESS [None]
  - SEROTONIN SYNDROME [None]
  - TREMOR [None]
